FAERS Safety Report 10721219 (Version 1)
Quarter: 2015Q1

REPORT INFORMATION
  Report Type: Spontaneous
  Country: US (occurrence: US)
  Receive Date: 20150119
  Receipt Date: 20150119
  Transmission Date: 20150721
  Serious: No
  Sender: FDA-Public Use
  Company Number: US-UNITED THERAPEUTICS-UNT-2014-007742

PATIENT
  Age: 35 Year
  Sex: Female
  Weight: 60.77 kg

DRUGS (3)
  1. COUMADIN [Concomitant]
     Active Substance: WARFARIN SODIUM
     Indication: PRODUCT USED FOR UNKNOWN INDICATION
  2. REMODULIN [Suspect]
     Active Substance: TREPROSTINIL
     Indication: PULMONARY ARTERIAL HYPERTENSION
     Dosage: 0.0455 ?G/KG/MIN, CONTINUING
     Route: 058
     Dates: start: 20140911
  3. REVATIO [Concomitant]
     Active Substance: SILDENAFIL CITRATE
     Indication: PRODUCT USED FOR UNKNOWN INDICATION

REACTIONS (16)
  - Infusion site infection [Unknown]
  - Infusion site haemorrhage [Unknown]
  - Drug dose omission [Unknown]
  - Pain in jaw [Unknown]
  - Unevaluable event [Unknown]
  - Infusion site pain [Not Recovered/Not Resolved]
  - Infusion site scab [Unknown]
  - Pruritus generalised [Unknown]
  - Infusion site erythema [Not Recovered/Not Resolved]
  - Nausea [Unknown]
  - Medical device complication [Unknown]
  - Infusion site induration [Not Recovered/Not Resolved]
  - Headache [Unknown]
  - Infusion site oedema [Not Recovered/Not Resolved]
  - Device dislocation [Unknown]
  - Injection site discharge [Unknown]

NARRATIVE: CASE EVENT DATE: 2014
